FAERS Safety Report 4471617-3 (Version None)
Quarter: 2004Q4

REPORT INFORMATION
  Report Type: 
  Country: None (occurrence: None)
  Receive Date: 20041012
  Receipt Date: 20041004
  Transmission Date: 20050328
  Serious: Yes (Other)
  Sender: FDA-Public Use
  Company Number: US-MERCK-0410USA00223

PATIENT
  Age: 64 Year
  Sex: Male

DRUGS (4)
  1. AVELOX [Suspect]
     Indication: SINUSITIS
     Route: 048
     Dates: start: 20040720, end: 20040918
  2. ZOCOR [Suspect]
     Indication: BLOOD CHOLESTEROL INCREASED
     Route: 048
     Dates: start: 20030501, end: 20040601
  3. ZOCOR [Suspect]
     Route: 048
     Dates: start: 20040601, end: 20040825
  4. ZOCOR [Suspect]
     Route: 048
     Dates: start: 19970101, end: 20030501

REACTIONS (6)
  - ALANINE AMINOTRANSFERASE INCREASED [None]
  - ASPARTATE AMINOTRANSFERASE INCREASED [None]
  - BLOOD ALKALINE PHOSPHATASE INCREASED [None]
  - DIZZINESS [None]
  - DRUG INTERACTION [None]
  - SINUSITIS [None]
